FAERS Safety Report 9261571 (Version 1)
Quarter: 2013Q2

REPORT INFORMATION
  Report Type: Spontaneous
  Country: DE (occurrence: DE)
  Receive Date: 20130429
  Receipt Date: 20130429
  Transmission Date: 20140414
  Serious: Yes (Hospitalization, Other)
  Sender: FDA-Public Use
  Company Number: DE-PFIZER INC-2013127512

PATIENT
  Age: 28 Year
  Sex: Female

DRUGS (13)
  1. ZIPRASIDONE HCL [Suspect]
     Dosage: 20 MG, UNK
     Route: 048
     Dates: start: 20121004, end: 20121012
  2. ZIPRASIDONE HCL [Suspect]
     Dosage: 40 MG, UNK
     Route: 048
     Dates: start: 20121008, end: 20121012
  3. QUETIAPINE FUMARATE [Suspect]
     Dosage: 600 MG, UNK
     Route: 048
     Dates: start: 20120926, end: 20120926
  4. QUETIAPINE FUMARATE [Suspect]
     Dosage: 450 MG, UNK
     Dates: start: 20120927, end: 20121003
  5. QUETIAPINE FUMARATE [Suspect]
     Dosage: 300 MG, UNK
     Route: 048
     Dates: start: 20121004, end: 20121008
  6. QUETIAPINE FUMARATE [Suspect]
     Dosage: 150 MG, UNK
     Route: 048
     Dates: start: 20121009, end: 20121012
  7. CHLORPROTHIXENE [Suspect]
     Dosage: 180 MG, UNK
     Route: 048
     Dates: start: 20120927, end: 20120927
  8. CHLORPROTHIXENE [Suspect]
     Dosage: 100 MG, UNK
     Route: 048
     Dates: start: 20120928, end: 20121012
  9. L-THYROXIN [Concomitant]
     Indication: HYPOTHYROIDISM
     Dosage: 125 UG, UNK
     Route: 048
  10. VALPROATE [Concomitant]
     Dosage: 900 MG, UNK
     Route: 048
     Dates: start: 2008, end: 20120927
  11. VALPROATE [Concomitant]
     Dosage: 450 MG, UNK
     Route: 048
     Dates: start: 20120928, end: 20121003
  12. VALPROATE [Concomitant]
     Dosage: 300 MG, UNK
     Dates: start: 20121004, end: 20121007
  13. VALPROATE [Concomitant]
     Dosage: 150 MG, UNK
     Route: 048
     Dates: start: 20121008, end: 20121012

REACTIONS (1)
  - Rhabdomyolysis [Recovered/Resolved]
